FAERS Safety Report 10063617 (Version 2)
Quarter: 2014Q2

REPORT INFORMATION
  Report Type: Report from Study
  Country: BR (occurrence: BR)
  Receive Date: 20140407
  Receipt Date: 20140506
  Transmission Date: 20141212
  Serious: Yes (Hospitalization, Other)
  Sender: FDA-Public Use
  Company Number: PHHY2014BR040237

PATIENT
  Sex: Female
  Weight: 64 kg

DRUGS (9)
  1. TRILEPTAL [Suspect]
     Dosage: UNK UKN, UNK
     Route: 048
     Dates: start: 2008
  2. PLAGREL [Suspect]
     Indication: ANTIPLATELET THERAPY
     Dosage: 1 DF, IN THE MORNING
     Route: 048
     Dates: start: 20140301
  3. PLAGREL [Suspect]
     Indication: PROPHYLAXIS
  4. CARBAMAZEPINE [Suspect]
     Indication: SCHIZOPHRENIA
     Dosage: 1 DF, TID (1 IN THE MORNING, 1 IN THE AFTERNOON AND 1 AT NIGHT)
     Route: 048
  5. PREBICTAL [Concomitant]
     Indication: DEPRESSION
     Dosage: 2 DF, DAILY
     Route: 048
     Dates: start: 20140301
  6. VALIUM [Concomitant]
     Indication: SLEEP DISORDER
     Dosage: 3 DF, DAILY (IF IT WAS NECESSARY, SHE COULD USE MORE TABLETS)
     Route: 048
  7. AAS [Concomitant]
     Indication: ANTIPLATELET THERAPY
     Dosage: 2 DF, DAILY (AFTER LUNCH)
     Route: 048
     Dates: start: 20140301
  8. ABLOK [Concomitant]
     Indication: HEART RATE INCREASED
     Dosage: 1 DF, UNK (WHEN SHE FELT HER HEART ACCELERATED, SPORADICALLY)
  9. LOSARTAN [Concomitant]
     Indication: BLOOD PRESSURE INCREASED
     Dosage: 1 DF, UNK (WHEN HER BLOOD PRESSURE WAS HIGH, SPORADICALLY)

REACTIONS (8)
  - Thrombophlebitis [Recovering/Resolving]
  - Coronary artery occlusion [Recovering/Resolving]
  - Coeliac artery occlusion [Recovering/Resolving]
  - Chills [Recovering/Resolving]
  - Crying [Unknown]
  - Agitation [Recovering/Resolving]
  - Dizziness [Recovering/Resolving]
  - Insomnia [Recovering/Resolving]
